FAERS Safety Report 5670364-X (Version None)
Quarter: 2008Q2

REPORT INFORMATION
  Report Type: 
  Country: None (occurrence: None)
  Receive Date: 20080305
  Receipt Date: 20070302
  Transmission Date: 20081010
  Serious: Yes (Other)
  Sender: FDA-Public Use
  Company Number: BDI-009150

PATIENT
  Age: 60 Year
  Sex: Male

DRUGS (3)
  1. ISOVUE-370 [Suspect]
     Indication: ANGINA PECTORIS
     Dosage: ONCE INTRA-ARTERIAL, ONCE INTRACARDIAC
     Route: 013
     Dates: start: 20070212, end: 20070212
  2. ISOVUE-370 [Suspect]
     Indication: ARTERIOGRAM CORONARY
     Dosage: ONCE INTRA-ARTERIAL, ONCE INTRACARDIAC
     Route: 013
     Dates: start: 20070212, end: 20070212
  3. ISOVUE-370 [Suspect]

REACTIONS (3)
  - ELECTROCARDIOGRAM ST SEGMENT ELEVATION [None]
  - HEART RATE IRREGULAR [None]
  - HYPOTENSION [None]
